FAERS Safety Report 22335580 (Version 1)
Quarter: 2023Q2

REPORT INFORMATION
  Report Type: Spontaneous
  Country: US (occurrence: US)
  Receive Date: 20230518
  Receipt Date: 20230518
  Transmission Date: 20230721
  Serious: Yes (Other)
  Sender: FDA-Public Use
  Company Number: US-AUROBINDO-AUR-APL-2023-036441

PATIENT
  Age: 21 Year
  Sex: Female

DRUGS (14)
  1. CYCLOPHOSPHAMIDE [Suspect]
     Active Substance: CYCLOPHOSPHAMIDE
     Indication: Angiocentric lymphoma
     Dosage: UNK
     Route: 065
  2. CYCLOPHOSPHAMIDE [Suspect]
     Active Substance: CYCLOPHOSPHAMIDE
     Indication: Epstein-Barr virus associated lymphoma
  3. PREDNISONE [Suspect]
     Active Substance: PREDNISONE
     Indication: Angiocentric lymphoma
     Dosage: UNK
     Route: 065
  4. PREDNISONE [Suspect]
     Active Substance: PREDNISONE
     Indication: Epstein-Barr virus associated lymphoma
  5. PREDNISONE [Suspect]
     Active Substance: PREDNISONE
     Indication: Granuloma
  6. DOXORUBICIN [Suspect]
     Active Substance: DOXORUBICIN
     Indication: Angiocentric lymphoma
     Dosage: UNK
     Route: 065
  7. DOXORUBICIN [Suspect]
     Active Substance: DOXORUBICIN
     Indication: Epstein-Barr virus associated lymphoma
  8. ETOPOSIDE [Suspect]
     Active Substance: ETOPOSIDE
     Indication: Angiocentric lymphoma
     Dosage: UNK
     Route: 065
  9. ETOPOSIDE [Suspect]
     Active Substance: ETOPOSIDE
     Indication: Epstein-Barr virus associated lymphoma
  10. RITUXIMAB [Suspect]
     Active Substance: RITUXIMAB
     Indication: Angiocentric lymphoma
     Dosage: UNK
     Route: 065
  11. RITUXIMAB [Suspect]
     Active Substance: RITUXIMAB
     Indication: Epstein-Barr virus associated lymphoma
  12. VINCRISTINE [Suspect]
     Active Substance: VINCRISTINE
     Indication: Angiocentric lymphoma
     Dosage: UNK
     Route: 065
  13. VINCRISTINE [Suspect]
     Active Substance: VINCRISTINE
     Indication: Epstein-Barr virus associated lymphoma
  14. HYDROXYCHLOROQUINE [Concomitant]
     Active Substance: HYDROXYCHLOROQUINE
     Indication: Granuloma
     Dosage: UNK
     Route: 065

REACTIONS (3)
  - Respiratory failure [Recovering/Resolving]
  - Bronchial secretion retention [Recovering/Resolving]
  - Drug ineffective [Unknown]
